FAERS Safety Report 5506837-X (Version None)
Quarter: 2007Q4

REPORT INFORMATION
  Report Type: 
  Country: None (occurrence: None)
  Receive Date: 20071105
  Receipt Date: 20071024
  Transmission Date: 20080405
  Serious: Yes (Death, Other)
  Sender: FDA-Public Use
  Company Number: JP-SHR-JP-2006-040042

PATIENT
  Age: 60 Year
  Sex: Male

DRUGS (6)
  1. BUSULFAN [Suspect]
     Indication: CORD BLOOD TRANSPLANT THERAPY
     Dosage: 4 MG/KG, DAY-6 TO -5
     Route: 042
     Dates: start: 20050101, end: 20050101
  2. TACROLIMUS [Concomitant]
     Indication: PROPHYLAXIS AGAINST GRAFT VERSUS HOST DISEASE
     Route: 042
     Dates: start: 20050101, end: 20050101
  3. FLUDARA [Suspect]
     Indication: CORD BLOOD TRANSPLANT THERAPY
     Dosage: 30 MG/M2, DAYS -8 TO -3
     Route: 042
     Dates: start: 20050101, end: 20050101
  4. CIPROFLOXACIN [Concomitant]
     Indication: ANTIBIOTIC PROPHYLAXIS
     Dates: start: 20050101, end: 20050101
  5. ACYCLOVIR [Concomitant]
     Indication: ANTIVIRAL PROPHYLAXIS
     Dates: start: 20050101, end: 20050101
  6. ITRACONAZOLE [Concomitant]
     Indication: ANTIFUNGAL PROPHYLAXIS
     Dates: start: 20050101, end: 20050101

REACTIONS (4)
  - HYPOVOLAEMIC SHOCK [None]
  - IMMUNE SYSTEM DISORDER [None]
  - PULMONARY ALVEOLAR HAEMORRHAGE [None]
  - THROMBOCYTOPENIA [None]
